FAERS Safety Report 7060278-5 (Version None)
Quarter: 2010Q4

REPORT INFORMATION
  Report Type: 
  Country: None (occurrence: None)
  Receive Date: 20101025
  Receipt Date: 20101020
  Transmission Date: 20110411
  Serious: Yes (Congenital Anomaly)
  Sender: FDA-Public Use
  Company Number: A0681090A

PATIENT
  Sex: Female

DRUGS (2)
  1. PAXIL CR [Suspect]
     Indication: DEPRESSION
     Dosage: 25MG TWICE PER DAY
     Dates: end: 20030101
  2. PAXIL [Suspect]
     Indication: DEPRESSION
     Dates: start: 20020101

REACTIONS (11)
  - DEVELOPMENTAL DELAY [None]
  - DRUG EXPOSURE DURING PREGNANCY [None]
  - FEMORAL ANTEVERSION [None]
  - FOETAL HEART RATE DECREASED [None]
  - FOOT DEFORMITY [None]
  - LIMB MALFORMATION [None]
  - PREMATURE BABY [None]
  - RESPIRATORY DISTRESS [None]
  - SPEECH DISORDER DEVELOPMENTAL [None]
  - TIBIAL TORSION [None]
  - TOTAL LUNG CAPACITY DECREASED [None]
